FAERS Safety Report 7724827-3 (Version None)
Quarter: 2011Q3

REPORT INFORMATION
  Report Type: 
  Country: None (occurrence: None)
  Receive Date: 20110829
  Receipt Date: 20110811
  Transmission Date: 20111222
  Serious: Yes (Death, Other)
  Sender: FDA-Public Use
  Company Number: 2011MA011689

PATIENT
  Age: 43 Year
  Sex: Male

DRUGS (1)
  1. LIDOCAINE [Suspect]
     Indication: OVERDOSE
     Dosage: 18.95 UG/ML ON AUTOPSY-BLOOD;IV
     Route: 042

REACTIONS (5)
  - OVERDOSE [None]
  - ARRHYTHMIA [None]
  - NEEDLE TRACK MARKS [None]
  - HOMICIDE [None]
  - CARDIAC FAILURE [None]
